FAERS Safety Report 20034237 (Version 2)
Quarter: 2021Q4

REPORT INFORMATION
  Report Type: Report from Study
  Country: CA (occurrence: CA)
  Receive Date: 20211104
  Receipt Date: 20211207
  Transmission Date: 20220303
  Serious: Yes (Death, Other)
  Sender: FDA-Public Use
  Company Number: CA-MYLANLABS-2021M1080355

PATIENT
  Age: 46 Year
  Sex: Female

DRUGS (1)
  1. CLOZAPINE [Suspect]
     Active Substance: CLOZAPINE
     Indication: Product used for unknown indication
     Dosage: UNK
     Dates: start: 20041013

REACTIONS (4)
  - Neoplasm malignant [Fatal]
  - Pancreatic carcinoma [Fatal]
  - Leukopenia [Unknown]
  - Granulocytopenia [Unknown]

NARRATIVE: CASE EVENT DATE: 20210916
